FAERS Safety Report 5749921-8 (Version None)
Quarter: 2008Q2

REPORT INFORMATION
  Report Type: 
  Country: None (occurrence: None)
  Receive Date: 20080527
  Receipt Date: 20080521
  Transmission Date: 20081010
  Serious: Yes (Hospitalization)
  Sender: FDA-Public Use
  Company Number: US-ELI_LILLY_AND_COMPANY-US200805004780

PATIENT
  Sex: Female
  Weight: 104.31 kg

DRUGS (6)
  1. BYETTA [Suspect]
     Indication: TYPE 2 DIABETES MELLITUS
     Dosage: 5 UG, DAILY (1/D)
     Route: 058
     Dates: start: 20050101
  2. BYETTA [Suspect]
     Dosage: 10 UG, DAILY (1/D)
     Route: 058
     Dates: end: 20080101
  3. BYETTA [Suspect]
     Dosage: 10 UG, 2/D
     Route: 058
     Dates: start: 20080101
  4. COUMADIN [Concomitant]
     Dosage: UNK, UNKNOWN
  5. ANTI-DIABETICS [Concomitant]
     Dosage: UNK, UNKNOWN
  6. CARDIAC THERAPY [Concomitant]
     Dosage: UNK, UNKNOWN

REACTIONS (4)
  - OSTEOPOROSIS [None]
  - PLATELET COUNT DECREASED [None]
  - SPINAL DISORDER [None]
  - WEIGHT DECREASED [None]
